FAERS Safety Report 8260633-1 (Version None)
Quarter: 2012Q2

REPORT INFORMATION
  Report Type: 
  Country: None (occurrence: None)
  Receive Date: 20120404
  Receipt Date: 20120329
  Transmission Date: 20120825
  Serious: Yes (Death)
  Sender: FDA-Public Use
  Company Number: DE-BRISTOL-MYERS SQUIBB COMPANY-16494692

PATIENT
  Age: 50 Year
  Sex: Male
  Weight: 103 kg

DRUGS (4)
  1. CILENGITIDE [Suspect]
     Indication: NON-SMALL CELL LUNG CANCER
     Dosage: RECENT INF:14MAR12, NO OF INF:4
     Route: 042
     Dates: start: 20120217
  2. CETUXIMAB [Suspect]
     Indication: NON-SMALL CELL LUNG CANCER
     Dosage: STRNGTH: 5MG/ML RESENT DOSE ON: 21MAR12 INFU:6
     Route: 042
     Dates: start: 20120217
  3. CISPLATIN [Suspect]
     Indication: NON-SMALL CELL LUNG CANCER
     Dosage: RECENT INF:7MAR12, NO OF INF:2
     Route: 042
     Dates: start: 20120217
  4. GEMCITABINE [Suspect]
     Indication: NON-SMALL CELL LUNG CANCER
     Dosage: DAY 1 AND DAY 8OF EACH 3 WK CYCLE 4TH INF, RECENT INF ON: 14MAR12
     Route: 042
     Dates: start: 20120217

REACTIONS (1)
  - PULMONARY EMBOLISM [None]
